FAERS Safety Report 17967578 (Version 1)
Quarter: 2020Q2

REPORT INFORMATION
  Report Type: Spontaneous
  Country: US (occurrence: US)
  Receive Date: 20200630
  Receipt Date: 20200630
  Transmission Date: 20200714
  Serious: Yes (Hospitalization)
  Sender: FDA-Public Use
  Company Number: None

PATIENT
  Sex: Female

DRUGS (2)
  1. AMBRISENTAN [Suspect]
     Active Substance: AMBRISENTAN
     Indication: PULMONARY ARTERIAL HYPERTENSION
     Route: 048
     Dates: start: 20190927
  2. SILDENAFIL. [Suspect]
     Active Substance: SILDENAFIL
     Indication: ESSENTIAL HYPERTENSION
     Route: 048
     Dates: start: 20190305

REACTIONS (3)
  - Pulmonary arterial hypertension [None]
  - Cardiac failure [None]
  - Dyspnoea [None]
